FAERS Safety Report 8804971 (Version 8)
Quarter: 2013Q2

REPORT INFORMATION
  Report Type: Spontaneous
  Country: US (occurrence: US)
  Receive Date: 20120924
  Receipt Date: 20130508
  Transmission Date: 20140414
  Serious: Yes (Hospitalization, Other)
  Sender: FDA-Public Use
  Company Number: US-009507513-1203USA02007

PATIENT
  Sex: Female
  Weight: 51.25 kg

DRUGS (4)
  1. FOSAMAX [Suspect]
     Indication: OSTEOPOROSIS
     Dosage: 10 MG, QD
     Route: 048
     Dates: start: 20000425
  2. FOSAMAX [Suspect]
     Dosage: 70 MG, QW
     Route: 048
     Dates: start: 20010604
  3. FOSAMAX PLUS D [Suspect]
     Indication: OSTEOPOROSIS
     Dosage: 70 MG/5600 IU, QW
     Route: 048
     Dates: start: 200711, end: 201003
  4. SPIRONOLACTONE [Concomitant]
     Indication: HYPERTENSION
     Dosage: UNK
     Dates: start: 2001, end: 2011

REACTIONS (30)
  - Femur fracture [Unknown]
  - Intramedullary rod insertion [Unknown]
  - Thrombophlebitis superficial [Unknown]
  - Hysterectomy [Unknown]
  - Spinal laminectomy [Unknown]
  - Colposcopy [Unknown]
  - Colposcopy [Unknown]
  - Haematocrit decreased [Recovered/Resolved]
  - Transfusion [Recovered/Resolved]
  - Fall [Unknown]
  - Cervical dysplasia [Unknown]
  - Uterine leiomyoma [Unknown]
  - Deep vein thrombosis [Unknown]
  - Squamous cell carcinoma [Unknown]
  - Cerebrovascular accident [Unknown]
  - Salpingo-oophorectomy bilateral [Unknown]
  - Ovarian adenoma [Unknown]
  - Osteoporosis [Unknown]
  - Atrophy [Unknown]
  - Enterocele [Unknown]
  - Cervical dysplasia [Unknown]
  - Vitamin D decreased [Unknown]
  - Tooth extraction [Unknown]
  - Arthritis [Unknown]
  - Knee deformity [Unknown]
  - Tenderness [Unknown]
  - Gait disturbance [Unknown]
  - Fracture delayed union [Unknown]
  - Medical device removal [Unknown]
  - Fracture malunion [Unknown]
